FAERS Safety Report 8524174-6 (Version None)
Quarter: 2012Q3

REPORT INFORMATION
  Report Type: 
  Country: None (occurrence: None)
  Receive Date: 20120716
  Receipt Date: 20120716
  Transmission Date: 20120928
  Serious: Yes (Other)
  Sender: FDA-Public Use
  Company Number: None

PATIENT
  Age: 65 Year
  Sex: Female
  Weight: 78.0187 kg

DRUGS (2)
  1. ARAVA [Suspect]
     Indication: ARTHRALGIA
     Dosage: ONE TABLET ONCE DAILY PO
     Route: 048
     Dates: start: 20120305, end: 20120514
  2. AZATHIOPRINE [Suspect]
     Indication: ARTHRALGIA
     Dosage: ONE TABLET TWICE DAILY PO
     Route: 048
     Dates: start: 20120305, end: 20120514

REACTIONS (6)
  - CELLULITIS [None]
  - CARDIAC FAILURE CONGESTIVE [None]
  - ESCHERICHIA TEST POSITIVE [None]
  - WHITE BLOOD CELL COUNT DECREASED [None]
  - PULMONARY OEDEMA [None]
  - WEIGHT INCREASED [None]
